FAERS Safety Report 4660469-4 (Version None)
Quarter: 2005Q2

REPORT INFORMATION
  Report Type: 
  Country: None (occurrence: None)
  Receive Date: 20050512
  Receipt Date: 20050505
  Transmission Date: 20051028
  Serious: Yes (Other)
  Sender: FDA-Public Use
  Company Number: GB-GLAXOSMITHKLINE-B0380051A

PATIENT
  Age: 69 Year
  Sex: Male
  Weight: 8 kg

DRUGS (10)
  1. AVANDAMET [Suspect]
     Indication: DIABETES MELLITUS
     Route: 048
     Dates: start: 20050330, end: 20050407
  2. WARFARIN SODIUM [Concomitant]
     Indication: ATRIAL FIBRILLATION
     Route: 048
  3. DIGOXIN [Concomitant]
     Indication: ATRIAL FIBRILLATION
     Dosage: .125MG PER DAY
     Route: 048
  4. FUROSEMIDE [Concomitant]
     Indication: CARDIAC FAILURE
     Dosage: 40MG PER DAY
     Route: 048
  5. AMILORIDE [Concomitant]
     Indication: CARDIAC FAILURE
     Dosage: 5MG PER DAY
     Route: 048
  6. CO-DYDRAMOL [Concomitant]
     Route: 065
  7. CO-AMOXICLAV [Concomitant]
     Route: 065
     Dates: start: 20050228, end: 20050307
  8. RAMIPRIL [Concomitant]
     Indication: HYPERTENSION
     Dosage: 10MG PER DAY
     Route: 048
  9. METFORMIN [Concomitant]
     Indication: DIABETES MELLITUS
     Dosage: 500MG PER DAY
     Route: 048
     Dates: start: 20050330
  10. SERETIDE [Concomitant]
     Indication: ASTHMA
     Dosage: 250MCG PER DAY
     Route: 065

REACTIONS (4)
  - GASTRIC DISORDER [None]
  - GINGIVAL SWELLING [None]
  - SWELLING FACE [None]
  - VISUAL DISTURBANCE [None]
